FAERS Safety Report 6484803-8 (Version None)
Quarter: 2009Q4

REPORT INFORMATION
  Report Type: 
  Country: None (occurrence: None)
  Receive Date: 20091209
  Receipt Date: 20090608
  Transmission Date: 20100525
  Serious: No
  Sender: FDA-Public Use
  Company Number: A0778439A

PATIENT
  Age: 63 Year
  Sex: Male
  Weight: 74.5 kg

DRUGS (15)
  1. AVANDAMET [Suspect]
     Route: 048
     Dates: start: 20080902
  2. TESTOSTERONE [Suspect]
     Indication: DRUG USE FOR UNKNOWN INDICATION
     Route: 042
  3. AVINZA [Concomitant]
  4. VYTORIN [Concomitant]
  5. ASPIRIN [Concomitant]
  6. ZOLOFT [Concomitant]
  7. ALPHAGAN [Concomitant]
  8. CARTEOLOL HYDROCHLORIDE [Concomitant]
  9. XALATAN [Concomitant]
  10. LORCET-HD [Concomitant]
  11. ZANAFLEX [Concomitant]
  12. BUSPAR [Concomitant]
  13. LOVAZA [Concomitant]
  14. PRIMIDONE [Concomitant]
  15. VITAMIN B-12 [Concomitant]

REACTIONS (4)
  - DRUG INEFFECTIVE [None]
  - PROSTATIC SPECIFIC ANTIGEN INCREASED [None]
  - WEIGHT DECREASED [None]
  - WEIGHT INCREASED [None]
